FAERS Safety Report 8472117-6 (Version None)
Quarter: 2012Q2

REPORT INFORMATION
  Report Type: 
  Country: None (occurrence: None)
  Receive Date: 20120627
  Receipt Date: 20120618
  Transmission Date: 20120825
  Serious: Yes (Other)
  Sender: FDA-Public Use
  Company Number: US-ASTRAZENECA-2011SE10929

PATIENT
  Age: 53 Year
  Sex: Female
  Weight: 90.7 kg

DRUGS (9)
  1. SEROQUEL [Suspect]
     Indication: INSOMNIA
     Route: 048
     Dates: start: 20070101
  2. SEROQUEL [Suspect]
     Dosage: BREAK IN HALF
     Route: 048
  3. SEROQUEL [Suspect]
     Route: 048
  4. SEROQUEL [Suspect]
     Dosage: BREAK IN HALF
     Route: 048
  5. SEROQUEL [Suspect]
     Route: 048
  6. SEROQUEL [Suspect]
     Dosage: BREAK IN HALF
     Route: 048
  7. SEROQUEL [Suspect]
     Indication: SLEEP DISORDER
     Route: 048
     Dates: start: 20070101
  8. SEROQUEL [Suspect]
     Indication: ANXIETY
     Route: 048
     Dates: start: 20070101
  9. SEROQUEL [Suspect]
     Route: 048

REACTIONS (11)
  - WEIGHT INCREASED [None]
  - INTENTIONAL DRUG MISUSE [None]
  - THERAPEUTIC RESPONSE UNEXPECTED [None]
  - MULTIPLE SCLEROSIS [None]
  - CONVULSION [None]
  - NASOPHARYNGITIS [None]
  - MALAISE [None]
  - DRUG DOSE OMISSION [None]
  - THROMBOSIS [None]
  - INSOMNIA [None]
  - OFF LABEL USE [None]
